FAERS Safety Report 24285509 (Version 1)
Quarter: 2024Q3

REPORT INFORMATION
  Report Type: Spontaneous
  Country: US (occurrence: None)
  Receive Date: 20240902
  Receipt Date: 20240902
  Transmission Date: 20241016
  Serious: Yes (Hospitalization)
  Sender: Public
  Company Number: None

PATIENT
  Sex: Female

DRUGS (1)
  1. MYCOPHENOLIC ACID [Suspect]
     Active Substance: MYCOPHENOLIC ACID
     Indication: Sjogren^s syndrome
     Dosage: 5 ML PO?? FREQUENCY: TAKE 5 ML BY MOUTH IN THE MORNING AND 5 ML IN THE EVENING?
     Route: 048
     Dates: start: 202303

REACTIONS (4)
  - Diaphragmalgia [None]
  - Liver disorder [None]
  - Vertigo [None]
  - Food allergy [None]
